FAERS Safety Report 5188096-3 (Version None)
Quarter: 2006Q4

REPORT INFORMATION
  Report Type: 
  Country: None (occurrence: None)
  Receive Date: 20061214
  Receipt Date: 20061214
  Transmission Date: 20070319
  Serious: Yes (Life-Threatening, Hospitalization)
  Sender: FDA-Public Use
  Company Number: None

PATIENT
  Age: 69 Year
  Sex: Female

DRUGS (14)
  1. LOTENSIN [Suspect]
     Indication: HYPERTENSION
     Dosage: 40 MG PO QDAY
     Route: 048
     Dates: start: 20060930
  2. OMEPRAZOLE [Concomitant]
  3. GEMFIBROZIL [Concomitant]
  4. HYDROCHLOROTHIAZIDE [Concomitant]
  5. PREMARIN [Concomitant]
  6. PLAQUENIL [Concomitant]
  7. DARVOCET [Concomitant]
  8. LEVOXYL [Concomitant]
  9. COMBIVENT [Concomitant]
  10. ASACOL [Concomitant]
  11. FOLATE [Concomitant]
  12. ADVAIR DISKUS 100/50 [Concomitant]
  13. CARAFATE [Concomitant]
  14. FE [Concomitant]

REACTIONS (2)
  - ANGIONEUROTIC OEDEMA [None]
  - SWOLLEN TONGUE [None]
